FAERS Safety Report 25636484 (Version 1)
Quarter: 2025Q3

REPORT INFORMATION
  Report Type: Spontaneous
  Country: AU (occurrence: AU)
  Receive Date: 20250804
  Receipt Date: 20250804
  Transmission Date: 20251020
  Serious: Yes (Death, Other)
  Sender: KVK-TECH
  Company Number: AU-KVK-TECH, INC-20250700109

PATIENT

DRUGS (3)
  1. OXYCODONE HYDROCHLORIDE [Suspect]
     Active Substance: OXYCODONE HYDROCHLORIDE
     Indication: Suicide attempt
     Route: 048
  2. AMITRIPTYLINE [Suspect]
     Active Substance: AMITRIPTYLINE
     Indication: Suicide attempt
     Route: 048
  3. NORTRIPTYLINE [Suspect]
     Active Substance: NORTRIPTYLINE
     Indication: Suicide attempt
     Route: 048

REACTIONS (6)
  - Pulmonary embolism [Fatal]
  - Deep vein thrombosis [Fatal]
  - Completed suicide [Fatal]
  - Immobilisation prolonged [None]
  - Toxicity to various agents [Fatal]
  - Intentional overdose [None]
